FAERS Safety Report 13466125 (Version 4)
Quarter: 2018Q1

REPORT INFORMATION
  Report Type: Spontaneous
  Country: US (occurrence: US)
  Receive Date: 20170421
  Receipt Date: 20180112
  Transmission Date: 20180508
  Serious: Yes (Hospitalization)
  Sender: FDA-Public Use
  Company Number: US-PFIZER INC-2017174686

PATIENT
  Age: 50 Year
  Sex: Male
  Weight: 80 kg

DRUGS (10)
  1. GENOTROPIN MQ [Suspect]
     Active Substance: SOMATROPIN
     Dosage: UNK
     Dates: end: 201706
  2. GENOTROPIN MQ [Suspect]
     Active Substance: SOMATROPIN
     Dosage: UNK
  3. GENOTROPIN MQ [Suspect]
     Active Substance: SOMATROPIN
     Dosage: 0.2 MG, 1X/DAY
     Dates: start: 20141201
  4. ANDROGEL [Concomitant]
     Active Substance: TESTOSTERONE
     Indication: ANDROGEN DEFICIENCY
     Dosage: APPLY 3 EACH TO A CLEAN DRY AREA EVERY DAY (1.62 % (20.25 MG/1.25 GRAM))
     Route: 062
     Dates: start: 201212
  5. ZOLOFT [Concomitant]
     Active Substance: SERTRALINE HYDROCHLORIDE
     Dosage: 100 MG, DAILY
     Route: 048
  6. GENOTROPIN MQ [Suspect]
     Active Substance: SOMATROPIN
     Indication: GROWTH HORMONE DEFICIENCY
     Dosage: 0.2 MG, DAILY [0.2MG/0.25ML]
     Route: 058
  7. GENOTROPIN MQ [Suspect]
     Active Substance: SOMATROPIN
     Dosage: 0.4 MG, DAILY [0.4MG/0.25ML]
     Route: 058
     Dates: start: 2014
  8. DDAVP [Concomitant]
     Active Substance: DESMOPRESSIN ACETATE
     Indication: DIABETES INSIPIDUS
     Dosage: 2X/DAY (TAKE 1 AND 1/2 TABLETS)
     Route: 048
     Dates: start: 201212
  9. SYNTHROID [Concomitant]
     Active Substance: LEVOTHYROXINE SODIUM
     Dosage: 100 UG, DAILY
     Route: 048
     Dates: start: 201212
  10. ZOLOFT [Concomitant]
     Active Substance: SERTRALINE HYDROCHLORIDE
     Dosage: 1/2 PILL, DAILY (FOR ONE WEEK )
     Route: 048
     Dates: start: 201603

REACTIONS (7)
  - Stress [Unknown]
  - Anxiety [Unknown]
  - Visual acuity reduced [Unknown]
  - Anger [Unknown]
  - Blood testosterone abnormal [Unknown]
  - Mood altered [Unknown]
  - Irritability [Unknown]
